FAERS Safety Report 10872938 (Version 1)
Quarter: 2015Q1

REPORT INFORMATION
  Report Type: Spontaneous
  Country: IN (occurrence: None)
  Receive Date: 20150223
  Receipt Date: 20150223
  Transmission Date: 20150721
  Serious: Yes (Other)
  Sender: FDA-Public Use
  Company Number: IN2015GSK022619

PATIENT
  Age: 45 Year
  Sex: Male

DRUGS (3)
  1. NEVIRAPINE (NEVIRAPINE) [Suspect]
     Active Substance: NEVIRAPINE
     Indication: HIV INFECTION
  2. STAVUDINE (STAVUDINE) [Suspect]
     Active Substance: STAVUDINE
     Indication: HIV INFECTION
  3. LAMIVUDINE. [Suspect]
     Active Substance: LAMIVUDINE
     Indication: HIV INFECTION

REACTIONS (4)
  - Leishmaniasis [None]
  - Papule [None]
  - Erythema [None]
  - Rash [None]
